FAERS Safety Report 8152403-X (Version None)
Quarter: 2012Q1

REPORT INFORMATION
  Report Type: 
  Country: None (occurrence: None)
  Receive Date: 20120221
  Receipt Date: 20120210
  Transmission Date: 20120608
  Serious: Yes (Hospitalization)
  Sender: FDA-Public Use
  Company Number: US-US-EMD SERONO, INC.-7011721

PATIENT
  Sex: Female

DRUGS (1)
  1. REBIF [Suspect]
     Indication: MULTIPLE SCLEROSIS
     Route: 058
     Dates: start: 20021003

REACTIONS (11)
  - CHILLS [None]
  - FEELING ABNORMAL [None]
  - PULMONARY HYPERTENSION [None]
  - CORONARY ARTERY DISEASE [None]
  - BACK INJURY [None]
  - FEELING DRUNK [None]
  - BALANCE DISORDER [None]
  - NASAL CONGESTION [None]
  - MUSCLE STRAIN [None]
  - FEELING COLD [None]
  - HEADACHE [None]
